FAERS Safety Report 8574053 (Version 2)
Quarter: 2012Q4

REPORT INFORMATION
  Report Type: 
  Country: IT (occurrence: IT)
  Receive Date: 20120522
  Receipt Date: 20120920
  Transmission Date: 20130627
  Serious: Yes (Hospitalization)
  Sender: FDA-Public Use
  Company Number: IT-GLAXOSMITHKLINE-B0802863A

PATIENT
  Age: 85 Year
  Sex: Female

DRUGS (1)
  1. VOTRIENT [Suspect]
     Indication: RENAL CANCER
     Dosage: 800MG per day
     Route: 048
     Dates: start: 20120406, end: 20120430

REACTIONS (1)
  - Bronchopneumonia [Recovering/Resolving]
